FAERS Safety Report 7137796-4 (Version None)
Quarter: 2010Q4

REPORT INFORMATION
  Report Type: 
  Country: None (occurrence: None)
  Receive Date: 20101103
  Receipt Date: 20101012
  Transmission Date: 20110411
  Serious: Yes (Other)
  Sender: FDA-Public Use
  Company Number: US-WYE-H18200210

PATIENT
  Age: 27 Year
  Sex: Male
  Weight: 81.72 kg

DRUGS (3)
  1. EFFEXOR XR [Suspect]
     Indication: PANIC DISORDER
     Dosage: 225 MG 1X PER 1 DAY, ORAL ; 150 MG 1X PER 1 DAY, ORAL
     Route: 048
     Dates: start: 20070101, end: 20090101
  2. EFFEXOR XR [Suspect]
     Indication: PANIC DISORDER
     Dosage: 225 MG 1X PER 1 DAY, ORAL ; 150 MG 1X PER 1 DAY, ORAL
     Route: 048
     Dates: start: 20090101
  3. ATENOLOL [Concomitant]

REACTIONS (1)
  - PANIC DISORDER [None]
